FAERS Safety Report 6708702-9 (Version None)
Quarter: 2010Q2

REPORT INFORMATION
  Report Type: 
  Country: None (occurrence: None)
  Receive Date: 20100503
  Receipt Date: 20100427
  Transmission Date: 20101027
  Serious: Yes (Other)
  Sender: FDA-Public Use
  Company Number: US-GILEAD-2010-0028452

PATIENT
  Age: 36 Year
  Sex: Female

DRUGS (5)
  1. TRUVADA [Suspect]
     Indication: HIV INFECTION
     Dates: start: 20080125, end: 20090807
  2. VIREAD [Suspect]
     Indication: HIV INFECTION
     Route: 048
  3. KALETRA [Concomitant]
     Indication: HIV INFECTION
     Dates: start: 20060619
  4. LAMIVUDINE [Concomitant]
     Indication: HIV INFECTION
     Dates: start: 20070801
  5. ABACAVIR [Concomitant]
     Indication: HIV INFECTION
     Dates: start: 20090808

REACTIONS (1)
  - STILLBIRTH [None]
